FAERS Safety Report 8787631 (Version 1)
Quarter: 2012Q4

REPORT INFORMATION
  Report Type: 
  Country: US (occurrence: US)
  Receive Date: 20120914
  Receipt Date: 20120914
  Transmission Date: 20130627
  Serious: No
  Sender: FDA-Public Use
  Company Number: US-VERTEX PHARMACEUTICAL INC.-AE-2012-009680

PATIENT

DRUGS (12)
  1. INCIVEK [Suspect]
     Indication: HEPATITIS C
     Route: 048
     Dates: start: 20120511
  2. RIBAVIRIN [Concomitant]
     Indication: HEPATITIS C
     Route: 048
     Dates: start: 20120511
  3. PEGASYS [Concomitant]
     Indication: HEPATITIS C
     Route: 058
     Dates: start: 20120511
  4. LORTAB [Concomitant]
     Indication: PAIN
     Route: 048
  5. METAMUCIL [Concomitant]
     Route: 048
  6. CLARITIN [Concomitant]
     Indication: HYPERSENSITIVITY
     Route: 048
  7. LISINOPRIL [Concomitant]
     Indication: HYPERTENSION
     Route: 048
  8. GLIMEPIRIDE [Concomitant]
     Indication: DIABETES MELLITUS
     Route: 048
  9. REQUIP [Concomitant]
     Indication: PARKINSON^S DISEASE
     Route: 048
  10. ASPIRIN [Concomitant]
     Route: 048
  11. NEURONTIN [Concomitant]
     Indication: NEURALGIA
     Route: 048
  12. METFORMIN [Concomitant]
     Indication: DIABETES MELLITUS
     Route: 048

REACTIONS (1)
  - Drug dose omission [Recovered/Resolved]
